FAERS Safety Report 22721349 (Version 2)
Quarter: 2024Q3

REPORT INFORMATION
  Report Type: Spontaneous
  Country: US (occurrence: US)
  Receive Date: 20230719
  Receipt Date: 20240723
  Transmission Date: 20241017
  Serious: No
  Sender: OTSUKA
  Company Number: US-OTSUKA-2023_003635

PATIENT
  Age: 20 Year
  Sex: Female

DRUGS (4)
  1. REXULTI [Suspect]
     Active Substance: BREXPIPRAZOLE
     Indication: Major depression
     Dosage: 2 MG
     Route: 065
     Dates: start: 20220519
  2. REXULTI [Suspect]
     Active Substance: BREXPIPRAZOLE
     Indication: Psychotic disorder
  3. REXULTI [Suspect]
     Active Substance: BREXPIPRAZOLE
     Indication: Intellectual disability
  4. REXULTI [Suspect]
     Active Substance: BREXPIPRAZOLE
     Indication: Generalised anxiety disorder

REACTIONS (2)
  - Amenorrhoea [Unknown]
  - Drug effective for unapproved indication [Unknown]

NARRATIVE: CASE EVENT DATE: 20220519
